FAERS Safety Report 11805947 (Version 2)
Quarter: 2015Q4

REPORT INFORMATION
  Report Type: Report from Study
  Country: IT (occurrence: IT)
  Receive Date: 20151207
  Receipt Date: 20151215
  Transmission Date: 20160305
  Serious: Yes (Life-Threatening, Hospitalization)
  Sender: FDA-Public Use
  Company Number: IT-BAYER-2015-422774

PATIENT
  Age: 52 Year
  Sex: Male
  Weight: 70 kg

DRUGS (5)
  1. SORAFENIB (RAF KINASE INHIBITOR) [Suspect]
     Active Substance: SORAFENIB
     Indication: HEPATOCELLULAR CARCINOMA
     Dosage: 400 MG, QD
     Route: 048
     Dates: start: 20150625
  2. SORAFENIB (RAF KINASE INHIBITOR) [Suspect]
     Active Substance: SORAFENIB
     Indication: HEPATOCELLULAR CARCINOMA
     Dosage: 200 MG, QD
     Route: 048
  3. PRIMOVIST [Suspect]
     Active Substance: GADOXETATE DISODIUM
     Indication: HEPATOCELLULAR CARCINOMA
     Dosage: 10 ML, QD
     Route: 042
     Dates: start: 20150618, end: 20150618
  4. NEXIUM [Concomitant]
     Active Substance: ESOMEPRAZOLE MAGNESIUM
     Indication: GASTRITIS
     Dosage: 40 MG, QD
     Route: 048
  5. TRIATEC [Concomitant]
     Active Substance: RAMIPRIL
     Indication: HYPERTENSION
     Dosage: UNK
     Route: 048
     Dates: start: 20150709

REACTIONS (3)
  - Bacterial diarrhoea [Recovered/Resolved]
  - Dehydration [Recovered/Resolved]
  - Acute kidney injury [Recovered/Resolved]

NARRATIVE: CASE EVENT DATE: 20150906
